FAERS Safety Report 7285508-6 (Version None)
Quarter: 2011Q1

REPORT INFORMATION
  Report Type: 
  Country: None (occurrence: None)
  Receive Date: 20110210
  Receipt Date: 20110203
  Transmission Date: 20110831
  Serious: Yes (Other)
  Sender: FDA-Public Use
  Company Number: DE-PFIZER INC-2010179359

PATIENT
  Age: 70 Year
  Sex: Female

DRUGS (3)
  1. XALATAN [Suspect]
     Indication: OPEN ANGLE GLAUCOMA
     Dosage: UNK
     Route: 047
     Dates: start: 19990101
  2. CORTI BICIRON [Suspect]
     Dosage: UNK
  3. KANAMYCIN [Suspect]
     Dosage: UNK

REACTIONS (4)
  - DRUG HYPERSENSITIVITY [None]
  - OCULAR HYPERAEMIA [None]
  - ABNORMAL SENSATION IN EYE [None]
  - CONJUNCTIVAL OEDEMA [None]
